FAERS Safety Report 7164272-5 (Version None)
Quarter: 2010Q4

REPORT INFORMATION
  Report Type: 
  Country: None (occurrence: None)
  Receive Date: 20101215
  Receipt Date: 20101210
  Transmission Date: 20110411
  Serious: Yes (Other)
  Sender: FDA-Public Use
  Company Number: CHPA2010US18995

PATIENT
  Age: 70 Year
  Sex: Female

DRUGS (9)
  1. PREVACID 24 HR [Suspect]
     Indication: GASTROOESOPHAGEAL REFLUX DISEASE
     Dosage: 15 MG, QD
     Route: 048
     Dates: start: 20101001, end: 20101201
  2. AZITHROMYCIN [Concomitant]
     Indication: LUNG INFECTION
     Dosage: UNK
  3. ERYTHROMYCIN [Concomitant]
     Indication: LUNG INFECTION
     Dosage: UNK
     Route: 048
  4. CLONAZEPAM [Concomitant]
     Dosage: UNK
  5. RESTASIS [Concomitant]
     Indication: SJOGREN'S SYNDROME
     Dosage: UNK
     Route: 047
  6. ADVAIR DISKUS 100/50 [Concomitant]
     Dosage: UNK
  7. SPIRIVA [Concomitant]
     Dosage: UNK
  8. OXYGEN [Concomitant]
  9. ANTIBIOTICS [Concomitant]

REACTIONS (5)
  - BACTERIAL INFECTION [None]
  - CONDITION AGGRAVATED [None]
  - DRUG INEFFECTIVE FOR UNAPPROVED INDICATION [None]
  - INTENTIONAL DRUG MISUSE [None]
  - THERAPEUTIC RESPONSE DECREASED [None]
